FAERS Safety Report 25844870 (Version 3)
Quarter: 2025Q4

REPORT INFORMATION
  Report Type: Report from Study
  Country: US (occurrence: US)
  Receive Date: 20250925
  Receipt Date: 20251208
  Transmission Date: 20260118
  Serious: Yes (Other)
  Sender: NOVARTIS
  Company Number: US-002147023-NVSC2024US156387

PATIENT
  Sex: Female

DRUGS (1)
  1. KESIMPTA [Suspect]
     Active Substance: OFATUMUMAB
     Indication: Product used for unknown indication
     Dosage: 20 MG, QMO, 0.4 ML
     Route: 050

REACTIONS (4)
  - Multiple sclerosis [Unknown]
  - Asthenia [Unknown]
  - Fatigue [Unknown]
  - Product use issue [Unknown]
